FAERS Safety Report 8367207-2 (Version None)
Quarter: 2012Q2

REPORT INFORMATION
  Report Type: 
  Country: None (occurrence: None)
  Receive Date: 20120517
  Receipt Date: 20120511
  Transmission Date: 20120825
  Serious: Yes (Hospitalization, Other)
  Sender: FDA-Public Use
  Company Number: PHHY2012GB040294

PATIENT
  Age: 82 Year
  Sex: Male

DRUGS (8)
  1. AMILORIDE HYDROCHLORIDE [Concomitant]
  2. AMLODIPINE BESYLATE [Concomitant]
  3. WARFARIN SODIUM [Concomitant]
     Indication: ATRIAL FIBRILLATION
  4. ALENDRONATE SODIUM [Suspect]
     Indication: OSTEOPOROSIS
     Dosage: 70 MG, QW
     Route: 048
     Dates: end: 20120430
  5. BENDROFLUMETHIAZIDE [Concomitant]
  6. CALCEOS [Concomitant]
  7. ACETAMINOPHEN AND CODEINE PHOSPHATE [Concomitant]
  8. DIGOXIN [Concomitant]

REACTIONS (3)
  - PNEUMOPERITONEUM [None]
  - ABDOMINAL PAIN [None]
  - DUODENAL ULCER PERFORATION [None]
